FAERS Safety Report 12851606 (Version 2)
Quarter: 2016Q4

REPORT INFORMATION
  Report Type: Spontaneous
  Country: NZ (occurrence: NZ)
  Receive Date: 20161016
  Receipt Date: 20161112
  Transmission Date: 20170207
  Serious: Yes (Other)
  Sender: FDA-Public Use
  Company Number: NZ-BAXTER-2016BAX052181

PATIENT
  Age: 62 Year
  Sex: Male

DRUGS (19)
  1. SODIUM CHLORIDE, 0.9%, SOLUTION FOR INFUSION [Suspect]
     Active Substance: SODIUM CHLORIDE
     Dosage: WITH 960 MG OF CYTARABINE
     Route: 042
     Dates: start: 20160327, end: 20160330
  2. ONDANSETRON [Concomitant]
     Active Substance: ONDANSETRON
     Indication: PRODUCT USED FOR UNKNOWN INDICATION
     Route: 065
  3. DOXEPIN [Concomitant]
     Active Substance: DOXEPIN
     Indication: PRODUCT USED FOR UNKNOWN INDICATION
     Route: 065
  4. WATER FOR INJECTION [Suspect]
     Active Substance: WATER
     Indication: MEDICATION DILUTION
     Dosage: WITH 480 MG OF ETOPOSIDE PHOSPHATE
     Route: 042
     Dates: start: 20160327, end: 20160330
  5. [PSS GPN] CYTARABINE [Suspect]
     Active Substance: CYTARABINE
     Indication: BONE MARROW CONDITIONING REGIMEN
     Dosage: 2 BAGS OF 480 MG
     Route: 042
     Dates: start: 20160327, end: 20160330
  6. ETOPOSIDE PHOSPHATE [Suspect]
     Active Substance: ETOPOSIDE PHOSPHATE
     Indication: BONE MARROW CONDITIONING REGIMEN
     Dosage: INFUSION
     Route: 042
     Dates: start: 20160327, end: 20160330
  7. MELPHALAN [Suspect]
     Active Substance: MELPHALAN
     Indication: BONE MARROW CONDITIONING REGIMEN
     Dosage: SINGLE DOSE
     Route: 042
     Dates: start: 20160331
  8. DOMPERIDONE [Concomitant]
     Active Substance: DOMPERIDONE
     Indication: PRODUCT USED FOR UNKNOWN INDICATION
     Route: 065
  9. ACICLOVIR [Concomitant]
     Active Substance: ACYCLOVIR
     Indication: PRODUCT USED FOR UNKNOWN INDICATION
     Route: 065
  10. SODIUM CHLORIDE, 0.9%, SOLUTION FOR INFUSION [Suspect]
     Active Substance: SODIUM CHLORIDE
     Indication: MEDICATION DILUTION
     Dosage: WITH 480 MG OF ETOPOSIDE PHOSPHATE
     Route: 042
     Dates: start: 20160327, end: 20160330
  11. [PSS GPN] CARMUSTINE (BICNU OFFER) 1G [Suspect]
     Active Substance: CARMUSTINE
     Indication: BONE MARROW CONDITIONING REGIMEN
     Dosage: SINGLE DOSE
     Route: 042
     Dates: start: 20160326
  12. WATER FOR INJECTION [Suspect]
     Active Substance: WATER
     Dosage: SINGLE DOSE, WITH 720 MG OF CARMUSTINE
     Route: 042
     Dates: start: 20160326
  13. DEXAMETHASONE. [Concomitant]
     Active Substance: DEXAMETHASONE
     Indication: PRODUCT USED FOR UNKNOWN INDICATION
     Route: 065
  14. FLUCONAZOLE. [Concomitant]
     Active Substance: FLUCONAZOLE
     Indication: PRODUCT USED FOR UNKNOWN INDICATION
     Route: 065
  15. GABAPENTIN. [Concomitant]
     Active Substance: GABAPENTIN
     Indication: PRODUCT USED FOR UNKNOWN INDICATION
     Route: 065
  16. GLUCOSE INJECTION, 5%, SOLUTION FOR INFUSION [Suspect]
     Active Substance: DEXTROSE
     Indication: MEDICATION DILUTION
     Dosage: SINGLE DOSE, WITH 720 MG WITH CARMUSTINE
     Route: 042
     Dates: start: 20160326
  17. APREPITANT. [Concomitant]
     Active Substance: APREPITANT
     Indication: PRODUCT USED FOR UNKNOWN INDICATION
     Route: 065
  18. TRIMETHOPRIM-SULFAMETHOXAZOLE [Concomitant]
     Active Substance: SULFAMETHOXAZOLE\TRIMETHOPRIM
     Indication: PRODUCT USED FOR UNKNOWN INDICATION
     Route: 065
  19. OMEPRAZOLE. [Concomitant]
     Active Substance: OMEPRAZOLE
     Indication: PRODUCT USED FOR UNKNOWN INDICATION
     Route: 065

REACTIONS (4)
  - Candida sepsis [Unknown]
  - Candida infection [None]
  - Respiratory moniliasis [Recovered/Resolved]
  - Sputum culture positive [None]

NARRATIVE: CASE EVENT DATE: 20160408
